FAERS Safety Report 18272721 (Version 4)
Quarter: 2025Q3

REPORT INFORMATION
  Report Type: Report from Study
  Country: CA (occurrence: CA)
  Receive Date: 20200916
  Receipt Date: 20250919
  Transmission Date: 20251021
  Serious: Yes (Life-Threatening, Hospitalization, Other)
  Sender: MYLAN
  Company Number: CA-PFIZER INC-2020355172

PATIENT
  Age: 52 Year
  Sex: Female

DRUGS (212)
  1. AMLODIPINE [Suspect]
     Active Substance: AMLODIPINE BESYLATE
     Indication: Hypertension
     Dosage: 1 DOSAGE FORM, QD (1 DF, 1X/DAY)
     Route: 048
  2. AMLODIPINE [Suspect]
     Active Substance: AMLODIPINE BESYLATE
     Dosage: 1 DOSAGE FORM, QD (1 DF, 1X/DAY)
     Route: 048
  3. AMLODIPINE [Suspect]
     Active Substance: AMLODIPINE BESYLATE
     Dosage: 1 DOSAGE FORM, QD (1 DF, 1X/DAY)
  4. AMLODIPINE [Suspect]
     Active Substance: AMLODIPINE BESYLATE
     Dosage: 1 DOSAGE FORM, QD (1 DF, 1X/DAY)
  5. AMLODIPINE [Suspect]
     Active Substance: AMLODIPINE BESYLATE
     Route: 048
  6. AMLODIPINE [Suspect]
     Active Substance: AMLODIPINE BESYLATE
  7. AMLODIPINE [Suspect]
     Active Substance: AMLODIPINE BESYLATE
  8. AMLODIPINE [Suspect]
     Active Substance: AMLODIPINE BESYLATE
     Route: 048
  9. AMLODIPINE [Suspect]
     Active Substance: AMLODIPINE BESYLATE
     Dosage: 2.5 MILLIGRAM, QD (1 EVERY 1 DAY)
     Route: 065
  10. AMLODIPINE [Suspect]
     Active Substance: AMLODIPINE BESYLATE
     Dosage: 2.5 MILLIGRAM, QD (1 EVERY 1 DAY)
     Route: 065
  11. AMLODIPINE [Suspect]
     Active Substance: AMLODIPINE BESYLATE
     Dosage: 2.5 MILLIGRAM, QD (1 EVERY 1 DAY)
  12. AMLODIPINE [Suspect]
     Active Substance: AMLODIPINE BESYLATE
     Dosage: 2.5 MILLIGRAM, QD (1 EVERY 1 DAY)
  13. AMLODIPINE [Suspect]
     Active Substance: AMLODIPINE BESYLATE
     Dosage: 5 MILLIGRAM, QD (1 EVERY 1 DAY)
     Route: 065
  14. AMLODIPINE [Suspect]
     Active Substance: AMLODIPINE BESYLATE
     Dosage: 5 MILLIGRAM, QD (1 EVERY 1 DAY)
  15. AMLODIPINE [Suspect]
     Active Substance: AMLODIPINE BESYLATE
     Dosage: 5 MILLIGRAM, QD (1 EVERY 1 DAY)
  16. AMLODIPINE [Suspect]
     Active Substance: AMLODIPINE BESYLATE
     Dosage: 5 MILLIGRAM, QD (1 EVERY 1 DAY)
     Route: 065
  17. CANDESARTAN CILEXETIL [Suspect]
     Active Substance: CANDESARTAN CILEXETIL
     Indication: Product used for unknown indication
     Dosage: 1 DOSAGE FORM, QD
  18. CANDESARTAN CILEXETIL [Suspect]
     Active Substance: CANDESARTAN CILEXETIL
     Dosage: 1 DOSAGE FORM, QD
     Route: 048
  19. CANDESARTAN CILEXETIL [Suspect]
     Active Substance: CANDESARTAN CILEXETIL
     Dosage: 1 DOSAGE FORM, QD
     Route: 048
  20. CANDESARTAN CILEXETIL [Suspect]
     Active Substance: CANDESARTAN CILEXETIL
     Dosage: 1 DOSAGE FORM, QD
  21. CANDESARTAN CILEXETIL [Suspect]
     Active Substance: CANDESARTAN CILEXETIL
     Indication: Product used for unknown indication
  22. CANDESARTAN CILEXETIL [Suspect]
     Active Substance: CANDESARTAN CILEXETIL
     Route: 048
  23. CANDESARTAN CILEXETIL [Suspect]
     Active Substance: CANDESARTAN CILEXETIL
     Route: 048
  24. CANDESARTAN CILEXETIL [Suspect]
     Active Substance: CANDESARTAN CILEXETIL
  25. LANTUS [Suspect]
     Active Substance: INSULIN GLARGINE
     Indication: Product used for unknown indication
  26. LANTUS [Suspect]
     Active Substance: INSULIN GLARGINE
     Route: 065
  27. LANTUS [Suspect]
     Active Substance: INSULIN GLARGINE
     Route: 065
  28. LANTUS [Suspect]
     Active Substance: INSULIN GLARGINE
  29. OMALIZUMAB [Suspect]
     Active Substance: OMALIZUMAB
     Indication: Asthma
  30. OMALIZUMAB [Suspect]
     Active Substance: OMALIZUMAB
  31. OMALIZUMAB [Suspect]
     Active Substance: OMALIZUMAB
     Route: 058
  32. OMALIZUMAB [Suspect]
     Active Substance: OMALIZUMAB
     Route: 058
  33. OMALIZUMAB [Suspect]
     Active Substance: OMALIZUMAB
  34. OMALIZUMAB [Suspect]
     Active Substance: OMALIZUMAB
  35. OMALIZUMAB [Suspect]
     Active Substance: OMALIZUMAB
     Route: 058
  36. OMALIZUMAB [Suspect]
     Active Substance: OMALIZUMAB
     Route: 058
  37. CICLESONIDE [Suspect]
     Active Substance: CICLESONIDE
     Indication: Product used for unknown indication
  38. CICLESONIDE [Suspect]
     Active Substance: CICLESONIDE
     Route: 065
  39. CICLESONIDE [Suspect]
     Active Substance: CICLESONIDE
     Route: 065
  40. CICLESONIDE [Suspect]
     Active Substance: CICLESONIDE
  41. CLINDAMYCIN [Suspect]
     Active Substance: CLINDAMYCIN
     Indication: Product used for unknown indication
  42. CLINDAMYCIN [Suspect]
     Active Substance: CLINDAMYCIN
     Route: 065
  43. CLINDAMYCIN [Suspect]
     Active Substance: CLINDAMYCIN
     Route: 065
  44. CLINDAMYCIN [Suspect]
     Active Substance: CLINDAMYCIN
  45. LANTUS [Suspect]
     Active Substance: INSULIN GLARGINE
     Indication: Type 2 diabetes mellitus
  46. LANTUS [Suspect]
     Active Substance: INSULIN GLARGINE
     Route: 065
  47. LANTUS [Suspect]
     Active Substance: INSULIN GLARGINE
     Route: 065
  48. LANTUS [Suspect]
     Active Substance: INSULIN GLARGINE
  49. OMALIZUMAB [Suspect]
     Active Substance: OMALIZUMAB
     Indication: Asthma
  50. OMALIZUMAB [Suspect]
     Active Substance: OMALIZUMAB
     Route: 058
  51. OMALIZUMAB [Suspect]
     Active Substance: OMALIZUMAB
     Route: 058
  52. OMALIZUMAB [Suspect]
     Active Substance: OMALIZUMAB
  53. OMALIZUMAB [Suspect]
     Active Substance: OMALIZUMAB
     Dosage: 225 MILLIGRAM, Q2W (1 EVERY 2 WEEKS)
  54. OMALIZUMAB [Suspect]
     Active Substance: OMALIZUMAB
     Dosage: 225 MILLIGRAM, Q2W (1 EVERY 2 WEEKS)
     Route: 058
  55. OMALIZUMAB [Suspect]
     Active Substance: OMALIZUMAB
     Dosage: 225 MILLIGRAM, Q2W (1 EVERY 2 WEEKS)
  56. OMALIZUMAB [Suspect]
     Active Substance: OMALIZUMAB
     Dosage: 225 MILLIGRAM, Q2W (1 EVERY 2 WEEKS)
     Route: 058
  57. OMALIZUMAB [Suspect]
     Active Substance: OMALIZUMAB
     Route: 058
  58. OMALIZUMAB [Suspect]
     Active Substance: OMALIZUMAB
     Route: 058
  59. OMALIZUMAB [Suspect]
     Active Substance: OMALIZUMAB
  60. OMALIZUMAB [Suspect]
     Active Substance: OMALIZUMAB
  61. OMALIZUMAB [Suspect]
     Active Substance: OMALIZUMAB
     Indication: Asthma
     Dosage: 225 MILLIGRAM, Q2W (1 EVERY 2 WEEKS)
     Route: 058
  62. OMALIZUMAB [Suspect]
     Active Substance: OMALIZUMAB
     Dosage: 225 MILLIGRAM, Q2W (1 EVERY 2 WEEKS)
  63. OMALIZUMAB [Suspect]
     Active Substance: OMALIZUMAB
     Dosage: 225 MILLIGRAM, Q2W (1 EVERY 2 WEEKS)
  64. OMALIZUMAB [Suspect]
     Active Substance: OMALIZUMAB
     Dosage: 225 MILLIGRAM, Q2W (1 EVERY 2 WEEKS)
     Route: 058
  65. OMALIZUMAB [Suspect]
     Active Substance: OMALIZUMAB
  66. OMALIZUMAB [Suspect]
     Active Substance: OMALIZUMAB
  67. OMALIZUMAB [Suspect]
     Active Substance: OMALIZUMAB
     Route: 058
  68. OMALIZUMAB [Suspect]
     Active Substance: OMALIZUMAB
     Route: 058
  69. OMALIZUMAB [Suspect]
     Active Substance: OMALIZUMAB
     Route: 058
  70. OMALIZUMAB [Suspect]
     Active Substance: OMALIZUMAB
  71. OMALIZUMAB [Suspect]
     Active Substance: OMALIZUMAB
  72. OMALIZUMAB [Suspect]
     Active Substance: OMALIZUMAB
     Route: 058
  73. CANDESARTAN [Suspect]
     Active Substance: CANDESARTAN
     Indication: Product used for unknown indication
     Dosage: 16 MILLIGRAM, QD (1 EVERY 1 DAYS)
  74. CANDESARTAN [Suspect]
     Active Substance: CANDESARTAN
     Dosage: 16 MILLIGRAM, QD (1 EVERY 1 DAYS)
     Route: 048
  75. CANDESARTAN [Suspect]
     Active Substance: CANDESARTAN
     Dosage: 16 MILLIGRAM, QD (1 EVERY 1 DAYS)
     Route: 048
  76. CANDESARTAN [Suspect]
     Active Substance: CANDESARTAN
     Dosage: 16 MILLIGRAM, QD (1 EVERY 1 DAYS)
  77. ALVESCO [Concomitant]
     Active Substance: CICLESONIDE
     Indication: Product used for unknown indication
     Dosage: 2 DOSAGE FORM, BID
     Route: 065
  78. ALVESCO [Concomitant]
     Active Substance: CICLESONIDE
     Dosage: 2 DOSAGE FORM, BID
     Route: 065
  79. ALVESCO [Concomitant]
     Active Substance: CICLESONIDE
     Dosage: 2 DOSAGE FORM, BID
  80. ALVESCO [Concomitant]
     Active Substance: CICLESONIDE
     Dosage: 2 DOSAGE FORM, BID
  81. ALVESCO [Concomitant]
     Active Substance: CICLESONIDE
     Route: 065
  82. ALVESCO [Concomitant]
     Active Substance: CICLESONIDE
  83. ALVESCO [Concomitant]
     Active Substance: CICLESONIDE
  84. ALVESCO [Concomitant]
     Active Substance: CICLESONIDE
     Route: 065
  85. ALVESCO [Concomitant]
     Active Substance: CICLESONIDE
     Dosage: 1 DOSAGE FORM, BID (2 EVERY 1 DAY)
     Route: 065
  86. ALVESCO [Concomitant]
     Active Substance: CICLESONIDE
     Dosage: 1 DOSAGE FORM, BID (2 EVERY 1 DAY)
     Route: 065
  87. ALVESCO [Concomitant]
     Active Substance: CICLESONIDE
     Dosage: 1 DOSAGE FORM, BID (2 EVERY 1 DAY)
  88. ALVESCO [Concomitant]
     Active Substance: CICLESONIDE
     Dosage: 1 DOSAGE FORM, BID (2 EVERY 1 DAY)
  89. ALVESCO [Concomitant]
     Active Substance: CICLESONIDE
     Dosage: 2 DOSAGE FORM, BID (2 EVERY 1 DAY)
     Route: 065
  90. ALVESCO [Concomitant]
     Active Substance: CICLESONIDE
     Dosage: 2 DOSAGE FORM, BID (2 EVERY 1 DAY)
  91. ALVESCO [Concomitant]
     Active Substance: CICLESONIDE
     Dosage: 2 DOSAGE FORM, BID (2 EVERY 1 DAY)
  92. ALVESCO [Concomitant]
     Active Substance: CICLESONIDE
     Dosage: 2 DOSAGE FORM, BID (2 EVERY 1 DAY)
     Route: 065
  93. FUROSEMIDE [Concomitant]
     Active Substance: FUROSEMIDE
     Indication: Oedema due to cardiac disease
     Dosage: 1 DOSAGE FORM, QD
  94. FUROSEMIDE [Concomitant]
     Active Substance: FUROSEMIDE
     Indication: Cardiac failure congestive
     Dosage: 1 DOSAGE FORM, QD
     Route: 048
  95. FUROSEMIDE [Concomitant]
     Active Substance: FUROSEMIDE
     Dosage: 1 DOSAGE FORM, QD
     Route: 048
  96. FUROSEMIDE [Concomitant]
     Active Substance: FUROSEMIDE
     Dosage: 1 DOSAGE FORM, QD
  97. SPIRIVA [Concomitant]
     Active Substance: TIOTROPIUM BROMIDE MONOHYDRATE
     Indication: Product used for unknown indication
     Dosage: 1 DOSAGE FORM, QD
     Route: 065
  98. SPIRIVA [Concomitant]
     Active Substance: TIOTROPIUM BROMIDE MONOHYDRATE
     Dosage: 1 DOSAGE FORM, QD
  99. SPIRIVA [Concomitant]
     Active Substance: TIOTROPIUM BROMIDE MONOHYDRATE
     Dosage: 1 DOSAGE FORM, QD
  100. SPIRIVA [Concomitant]
     Active Substance: TIOTROPIUM BROMIDE MONOHYDRATE
     Dosage: 1 DOSAGE FORM, QD
     Route: 065
  101. SPIRIVA [Concomitant]
     Active Substance: TIOTROPIUM BROMIDE MONOHYDRATE
     Route: 065
  102. SPIRIVA [Concomitant]
     Active Substance: TIOTROPIUM BROMIDE MONOHYDRATE
  103. SPIRIVA [Concomitant]
     Active Substance: TIOTROPIUM BROMIDE MONOHYDRATE
  104. SPIRIVA [Concomitant]
     Active Substance: TIOTROPIUM BROMIDE MONOHYDRATE
     Route: 065
  105. SYMBICORT [Concomitant]
     Active Substance: BUDESONIDE\FORMOTEROL FUMARATE DIHYDRATE
     Dosage: 2 DOSAGE FORM, BID (2 DF, 2X/DAY)
  106. SYMBICORT [Concomitant]
     Active Substance: BUDESONIDE\FORMOTEROL FUMARATE DIHYDRATE
     Dosage: 2 DOSAGE FORM, BID (2 DF, 2X/DAY)
     Route: 065
  107. SYMBICORT [Concomitant]
     Active Substance: BUDESONIDE\FORMOTEROL FUMARATE DIHYDRATE
     Dosage: 2 DOSAGE FORM, BID (2 DF, 2X/DAY)
     Route: 065
  108. SYMBICORT [Concomitant]
     Active Substance: BUDESONIDE\FORMOTEROL FUMARATE DIHYDRATE
     Dosage: 2 DOSAGE FORM, BID (2 DF, 2X/DAY)
  109. VANCOMYCIN [Concomitant]
     Active Substance: VANCOMYCIN
     Indication: Product used for unknown indication
     Route: 042
  110. VANCOMYCIN [Concomitant]
     Active Substance: VANCOMYCIN
  111. VANCOMYCIN [Concomitant]
     Active Substance: VANCOMYCIN
  112. VANCOMYCIN [Concomitant]
     Active Substance: VANCOMYCIN
     Route: 042
  113. VANCOMYCIN [Concomitant]
     Active Substance: VANCOMYCIN
     Route: 065
  114. VANCOMYCIN [Concomitant]
     Active Substance: VANCOMYCIN
  115. VANCOMYCIN [Concomitant]
     Active Substance: VANCOMYCIN
  116. VANCOMYCIN [Concomitant]
     Active Substance: VANCOMYCIN
     Route: 065
  117. VENTOLIN [Concomitant]
     Active Substance: ALBUTEROL SULFATE
     Indication: Middle insomnia
     Route: 065
  118. VENTOLIN [Concomitant]
     Active Substance: ALBUTEROL SULFATE
     Indication: Asthma
     Route: 065
  119. VENTOLIN [Concomitant]
     Active Substance: ALBUTEROL SULFATE
  120. VENTOLIN [Concomitant]
     Active Substance: ALBUTEROL SULFATE
  121. VENTOLIN [Concomitant]
     Active Substance: ALBUTEROL SULFATE
  122. VENTOLIN [Concomitant]
     Active Substance: ALBUTEROL SULFATE
  123. VENTOLIN [Concomitant]
     Active Substance: ALBUTEROL SULFATE
     Route: 065
  124. VENTOLIN [Concomitant]
     Active Substance: ALBUTEROL SULFATE
     Route: 065
  125. VENTOLIN [Concomitant]
     Active Substance: ALBUTEROL SULFATE
     Dosage: 2 DOSAGE FORM, BID (2 EVERY 1 DAY)
     Route: 065
  126. VENTOLIN [Concomitant]
     Active Substance: ALBUTEROL SULFATE
     Dosage: 2 DOSAGE FORM, BID (2 EVERY 1 DAY)
     Route: 065
  127. VENTOLIN [Concomitant]
     Active Substance: ALBUTEROL SULFATE
     Dosage: 2 DOSAGE FORM, BID (2 EVERY 1 DAY)
  128. VENTOLIN [Concomitant]
     Active Substance: ALBUTEROL SULFATE
     Dosage: 2 DOSAGE FORM, BID (2 EVERY 1 DAY)
  129. VENTOLIN [Concomitant]
     Active Substance: ALBUTEROL SULFATE
     Dosage: 2 DOSAGE FORM, QD (1 EVERY 1 DAY)
     Route: 055
  130. VENTOLIN [Concomitant]
     Active Substance: ALBUTEROL SULFATE
     Dosage: 2 DOSAGE FORM, QD (1 EVERY 1 DAY)
  131. VENTOLIN [Concomitant]
     Active Substance: ALBUTEROL SULFATE
     Dosage: 2 DOSAGE FORM, QD (1 EVERY 1 DAY)
  132. VENTOLIN [Concomitant]
     Active Substance: ALBUTEROL SULFATE
     Dosage: 2 DOSAGE FORM, QD (1 EVERY 1 DAY)
     Route: 055
  133. VENTOLIN [Concomitant]
     Active Substance: ALBUTEROL SULFATE
     Dosage: UNK, QD (1 EVERY 1 DAY)
  134. VENTOLIN [Concomitant]
     Active Substance: ALBUTEROL SULFATE
     Dosage: UNK, QD (1 EVERY 1 DAY)
     Route: 055
  135. VENTOLIN [Concomitant]
     Active Substance: ALBUTEROL SULFATE
     Dosage: UNK, QD (1 EVERY 1 DAY)
     Route: 055
  136. VENTOLIN [Concomitant]
     Active Substance: ALBUTEROL SULFATE
     Dosage: UNK, QD (1 EVERY 1 DAY)
  137. VENTOLIN [Concomitant]
     Active Substance: ALBUTEROL SULFATE
     Dosage: 2 DOSAGE FORM, TID (3 EVERY 1 DAY)
     Route: 065
  138. VENTOLIN [Concomitant]
     Active Substance: ALBUTEROL SULFATE
     Dosage: 2 DOSAGE FORM, TID (3 EVERY 1 DAY)
  139. VENTOLIN [Concomitant]
     Active Substance: ALBUTEROL SULFATE
     Dosage: 2 DOSAGE FORM, TID (3 EVERY 1 DAY)
  140. VENTOLIN [Concomitant]
     Active Substance: ALBUTEROL SULFATE
     Dosage: 2 DOSAGE FORM, TID (3 EVERY 1 DAY)
     Route: 065
  141. BUDESONIDE\FORMOTEROL FUMARATE [Concomitant]
     Active Substance: BUDESONIDE\FORMOTEROL FUMARATE
     Indication: Product used for unknown indication
  142. BUDESONIDE\FORMOTEROL FUMARATE [Concomitant]
     Active Substance: BUDESONIDE\FORMOTEROL FUMARATE
     Route: 065
  143. BUDESONIDE\FORMOTEROL FUMARATE [Concomitant]
     Active Substance: BUDESONIDE\FORMOTEROL FUMARATE
     Route: 065
  144. BUDESONIDE\FORMOTEROL FUMARATE [Concomitant]
     Active Substance: BUDESONIDE\FORMOTEROL FUMARATE
  145. FUROSEMIDE [Concomitant]
     Active Substance: FUROSEMIDE
     Indication: Oedema due to cardiac disease
  146. FUROSEMIDE [Concomitant]
     Active Substance: FUROSEMIDE
     Indication: Diuretic therapy
     Route: 048
  147. FUROSEMIDE [Concomitant]
     Active Substance: FUROSEMIDE
     Indication: Cardiac failure congestive
     Route: 048
  148. FUROSEMIDE [Concomitant]
     Active Substance: FUROSEMIDE
  149. ATIVAN [Concomitant]
     Active Substance: LORAZEPAM
     Indication: Product used for unknown indication
  150. ATIVAN [Concomitant]
     Active Substance: LORAZEPAM
     Route: 065
  151. ATIVAN [Concomitant]
     Active Substance: LORAZEPAM
     Route: 065
  152. ATIVAN [Concomitant]
     Active Substance: LORAZEPAM
  153. ATROVENT [Concomitant]
     Active Substance: IPRATROPIUM BROMIDE
     Indication: Product used for unknown indication
  154. ATROVENT [Concomitant]
     Active Substance: IPRATROPIUM BROMIDE
     Route: 065
  155. ATROVENT [Concomitant]
     Active Substance: IPRATROPIUM BROMIDE
     Route: 065
  156. ATROVENT [Concomitant]
     Active Substance: IPRATROPIUM BROMIDE
  157. BILASTINE [Concomitant]
     Active Substance: BILASTINE
     Indication: Product used for unknown indication
  158. BILASTINE [Concomitant]
     Active Substance: BILASTINE
     Route: 065
  159. BILASTINE [Concomitant]
     Active Substance: BILASTINE
     Route: 065
  160. BILASTINE [Concomitant]
     Active Substance: BILASTINE
  161. CLONIDINE [Concomitant]
     Active Substance: CLONIDINE
     Indication: Product used for unknown indication
  162. CLONIDINE [Concomitant]
     Active Substance: CLONIDINE
     Route: 065
  163. CLONIDINE [Concomitant]
     Active Substance: CLONIDINE
     Route: 065
  164. CLONIDINE [Concomitant]
     Active Substance: CLONIDINE
  165. FLURAZEPAM [Concomitant]
     Active Substance: FLURAZEPAM HYDROCHLORIDE
     Indication: Product used for unknown indication
  166. FLURAZEPAM [Concomitant]
     Active Substance: FLURAZEPAM HYDROCHLORIDE
     Route: 065
  167. FLURAZEPAM [Concomitant]
     Active Substance: FLURAZEPAM HYDROCHLORIDE
     Route: 065
  168. FLURAZEPAM [Concomitant]
     Active Substance: FLURAZEPAM HYDROCHLORIDE
  169. LORAZEPAM [Concomitant]
     Active Substance: LORAZEPAM
     Indication: Product used for unknown indication
  170. LORAZEPAM [Concomitant]
     Active Substance: LORAZEPAM
     Route: 060
  171. LORAZEPAM [Concomitant]
     Active Substance: LORAZEPAM
     Route: 060
  172. LORAZEPAM [Concomitant]
     Active Substance: LORAZEPAM
  173. MOMETASONE [Concomitant]
     Active Substance: MOMETASONE
     Indication: Product used for unknown indication
  174. MOMETASONE [Concomitant]
     Active Substance: MOMETASONE
     Route: 065
  175. MOMETASONE [Concomitant]
     Active Substance: MOMETASONE
     Route: 065
  176. MOMETASONE [Concomitant]
     Active Substance: MOMETASONE
  177. PANTOPRAZOLE [Concomitant]
     Active Substance: PANTOPRAZOLE
     Indication: Product used for unknown indication
     Dosage: 40 MILLIGRAM, QD (1 EVERY 1 DAYS)
  178. PANTOPRAZOLE [Concomitant]
     Active Substance: PANTOPRAZOLE
     Dosage: 40 MILLIGRAM, QD (1 EVERY 1 DAYS)
     Route: 065
  179. PANTOPRAZOLE [Concomitant]
     Active Substance: PANTOPRAZOLE
     Dosage: 40 MILLIGRAM, QD (1 EVERY 1 DAYS)
     Route: 065
  180. PANTOPRAZOLE [Concomitant]
     Active Substance: PANTOPRAZOLE
     Dosage: 40 MILLIGRAM, QD (1 EVERY 1 DAYS)
  181. PANTOPRAZOLE SODIUM [Concomitant]
     Active Substance: PANTOPRAZOLE SODIUM
     Indication: Product used for unknown indication
  182. PANTOPRAZOLE SODIUM [Concomitant]
     Active Substance: PANTOPRAZOLE SODIUM
     Route: 065
  183. PANTOPRAZOLE SODIUM [Concomitant]
     Active Substance: PANTOPRAZOLE SODIUM
     Route: 065
  184. PANTOPRAZOLE SODIUM [Concomitant]
     Active Substance: PANTOPRAZOLE SODIUM
  185. PULMICORT TURBUHALER [Concomitant]
     Active Substance: BUDESONIDE
     Indication: Product used for unknown indication
  186. PULMICORT TURBUHALER [Concomitant]
     Active Substance: BUDESONIDE
  187. PULMICORT TURBUHALER [Concomitant]
     Active Substance: BUDESONIDE
     Route: 065
  188. PULMICORT TURBUHALER [Concomitant]
     Active Substance: BUDESONIDE
     Route: 065
  189. PULMICORT TURBUHALER [Concomitant]
     Active Substance: BUDESONIDE
     Dosage: 0.25 MILLIGRAM, BID (2 EVERY 1 DAYS)
  190. PULMICORT TURBUHALER [Concomitant]
     Active Substance: BUDESONIDE
     Dosage: 0.25 MILLIGRAM, BID (2 EVERY 1 DAYS)
  191. PULMICORT TURBUHALER [Concomitant]
     Active Substance: BUDESONIDE
     Dosage: 0.25 MILLIGRAM, BID (2 EVERY 1 DAYS)
     Route: 065
  192. PULMICORT TURBUHALER [Concomitant]
     Active Substance: BUDESONIDE
     Dosage: 0.25 MILLIGRAM, BID (2 EVERY 1 DAYS)
     Route: 065
  193. SALMETEROL XINAFOATE [Concomitant]
     Active Substance: SALMETEROL XINAFOATE
     Indication: Product used for unknown indication
     Dosage: 1 DOSAGE FORM, BID (2 EVERY 1 DAY)
  194. SALMETEROL XINAFOATE [Concomitant]
     Active Substance: SALMETEROL XINAFOATE
     Dosage: 1 DOSAGE FORM, BID (2 EVERY 1 DAY)
     Route: 065
  195. SALMETEROL XINAFOATE [Concomitant]
     Active Substance: SALMETEROL XINAFOATE
     Dosage: 1 DOSAGE FORM, BID (2 EVERY 1 DAY)
     Route: 065
  196. SALMETEROL XINAFOATE [Concomitant]
     Active Substance: SALMETEROL XINAFOATE
     Dosage: 1 DOSAGE FORM, BID (2 EVERY 1 DAY)
  197. SINGULAIR [Concomitant]
     Active Substance: MONTELUKAST SODIUM
     Indication: Product used for unknown indication
     Dosage: 1 DOSAGE FORM, QD (1 EVERY 1 DAYS)
  198. SINGULAIR [Concomitant]
     Active Substance: MONTELUKAST SODIUM
     Dosage: 1 DOSAGE FORM, QD (1 EVERY 1 DAYS)
     Route: 065
  199. SINGULAIR [Concomitant]
     Active Substance: MONTELUKAST SODIUM
     Dosage: 1 DOSAGE FORM, QD (1 EVERY 1 DAYS)
     Route: 065
  200. SINGULAIR [Concomitant]
     Active Substance: MONTELUKAST SODIUM
     Dosage: 1 DOSAGE FORM, QD (1 EVERY 1 DAYS)
  201. SODIUM BICARBONATE\SODIUM CHLORIDE [Concomitant]
     Active Substance: SODIUM BICARBONATE\SODIUM CHLORIDE
     Indication: Product used for unknown indication
  202. SODIUM BICARBONATE\SODIUM CHLORIDE [Concomitant]
     Active Substance: SODIUM BICARBONATE\SODIUM CHLORIDE
     Route: 065
  203. SODIUM BICARBONATE\SODIUM CHLORIDE [Concomitant]
     Active Substance: SODIUM BICARBONATE\SODIUM CHLORIDE
     Route: 065
  204. SODIUM BICARBONATE\SODIUM CHLORIDE [Concomitant]
     Active Substance: SODIUM BICARBONATE\SODIUM CHLORIDE
  205. ZOPICLONE [Concomitant]
     Active Substance: ZOPICLONE
     Indication: Product used for unknown indication
  206. ZOPICLONE [Concomitant]
     Active Substance: ZOPICLONE
     Route: 065
  207. ZOPICLONE [Concomitant]
     Active Substance: ZOPICLONE
     Route: 065
  208. ZOPICLONE [Concomitant]
     Active Substance: ZOPICLONE
  209. PREDNISONE [Concomitant]
     Active Substance: PREDNISONE
     Indication: Asthma
  210. PREDNISONE [Concomitant]
     Active Substance: PREDNISONE
     Route: 065
  211. PREDNISONE [Concomitant]
     Active Substance: PREDNISONE
     Route: 065
  212. PREDNISONE [Concomitant]
     Active Substance: PREDNISONE

REACTIONS (44)
  - Weight fluctuation [Recovered/Resolved]
  - Asthma [Recovered/Resolved]
  - Angina pectoris [Recovered/Resolved]
  - Contusion [Recovered/Resolved]
  - Exposure to allergen [Recovered/Resolved]
  - Eye allergy [Recovered/Resolved]
  - Fibromuscular dysplasia [Recovered/Resolved]
  - Intestinal obstruction [Recovered/Resolved]
  - Nasopharyngitis [Recovered/Resolved]
  - Obstructive airways disorder [Recovered/Resolved]
  - Pneumonia [Recovered/Resolved]
  - Post procedural infection [Recovered/Resolved]
  - Type 2 diabetes mellitus [Recovered/Resolved]
  - Viral infection [Recovered/Resolved]
  - Illness [Recovered/Resolved]
  - Pain [Recovered/Resolved]
  - Blood pressure increased [Recovered/Resolved]
  - Weight decreased [Recovered/Resolved]
  - Fatigue [Recovered/Resolved]
  - Oedema peripheral [Recovered/Resolved]
  - Heart rate increased [Recovered/Resolved]
  - Poisoning [Recovered/Resolved]
  - Incorrect dose administered [Recovered/Resolved]
  - Chromaturia [Not Recovered/Not Resolved]
  - Cough [Not Recovered/Not Resolved]
  - Dyspnoea [Not Recovered/Not Resolved]
  - Eye inflammation [Not Recovered/Not Resolved]
  - Eye pruritus [Not Recovered/Not Resolved]
  - Ocular hyperaemia [Not Recovered/Not Resolved]
  - Procedural pain [Not Recovered/Not Resolved]
  - Proteinuria [Not Recovered/Not Resolved]
  - Sepsis [Not Recovered/Not Resolved]
  - Wheezing [Not Recovered/Not Resolved]
  - Upper airway obstruction [Not Recovered/Not Resolved]
  - Pollakiuria [Not Recovered/Not Resolved]
  - Malaise [Not Recovered/Not Resolved]
  - Back pain [Not Recovered/Not Resolved]
  - Drug hypersensitivity [Not Recovered/Not Resolved]
  - Hypertension [Not Recovered/Not Resolved]
  - Inappropriate schedule of product administration [Not Recovered/Not Resolved]
  - Injection site pain [Not Recovered/Not Resolved]
  - Lung disorder [Not Recovered/Not Resolved]
  - Middle insomnia [Not Recovered/Not Resolved]
  - Sinusitis [Not Recovered/Not Resolved]
